FAERS Safety Report 24274933 (Version 2)
Quarter: 2024Q4

REPORT INFORMATION
  Report Type: Spontaneous
  Country: US (occurrence: US)
  Receive Date: 20240902
  Receipt Date: 20241115
  Transmission Date: 20250115
  Serious: Yes (Hospitalization, Other)
  Sender: DOMPE FARMACEUTICI
  Company Number: US-FARMAPROD-202408-3016

PATIENT
  Age: 83 Year
  Sex: Female

DRUGS (19)
  1. OXERVATE [Suspect]
     Active Substance: CENEGERMIN-BKBJ
     Indication: Neurotrophic keratopathy
     Route: 047
     Dates: start: 20210422, end: 20210617
  2. OXERVATE [Suspect]
     Active Substance: CENEGERMIN-BKBJ
     Indication: Neurotrophic keratopathy
     Route: 047
  3. OXERVATE [Suspect]
     Active Substance: CENEGERMIN-BKBJ
     Route: 047
     Dates: start: 20220316, end: 20220609
  4. OXERVATE [Suspect]
     Active Substance: CENEGERMIN-BKBJ
     Route: 047
     Dates: start: 20231016, end: 20231211
  5. OXERVATE [Suspect]
     Active Substance: CENEGERMIN-BKBJ
     Route: 047
     Dates: start: 20240812, end: 2024
  6. OXERVATE [Suspect]
     Active Substance: CENEGERMIN-BKBJ
  7. OXERVATE [Suspect]
     Active Substance: CENEGERMIN-BKBJ
  8. OXERVATE [Suspect]
     Active Substance: CENEGERMIN-BKBJ
  9. OXERVATE [Suspect]
     Active Substance: CENEGERMIN-BKBJ
  10. OXERVATE [Suspect]
     Active Substance: CENEGERMIN-BKBJ
  11. OXERVATE [Suspect]
     Active Substance: CENEGERMIN-BKBJ
  12. OXERVATE [Suspect]
     Active Substance: CENEGERMIN-BKBJ
     Route: 047
     Dates: start: 20240911
  13. VITAMIN D3 [Concomitant]
     Active Substance: CHOLECALCIFEROL
     Dosage: 10(400)/ML
  14. LORATADINE-D [Concomitant]
     Dosage: 24 HOURS
  15. ESTRADIOL [Concomitant]
     Active Substance: ESTRADIOL
     Dosage: CREAM WITH APPLICATOR
  16. EYE DROPS ADVANCED RELIEF [Concomitant]
     Active Substance: DEXTRAN 70\POLYETHYLENE GLYCOL 400\POVIDONE\TETRAHYDROZOLINE HYDROCHLORIDE
  17. CALCIUM\VITAMIN D [Concomitant]
     Active Substance: CALCIUM\VITAMIN D
     Dosage: 500 MG-1000
  18. ESTRADIOL-TESTOSTERONE-PROGESTERONE [Concomitant]
  19. MAXITROL [Concomitant]
     Active Substance: DEXAMETHASONE\NEOMYCIN SULFATE\POLYMYXIN B SULFATE
     Route: 047
     Dates: start: 202407

REACTIONS (3)
  - Fall [Recovering/Resolving]
  - Pelvic fracture [Recovering/Resolving]
  - Eye pain [Not Recovered/Not Resolved]

NARRATIVE: CASE EVENT DATE: 20241003
